FAERS Safety Report 7470271-6 (Version None)
Quarter: 2011Q2

REPORT INFORMATION
  Report Type: 
  Country: None (occurrence: None)
  Receive Date: 20110510
  Receipt Date: 20110427
  Transmission Date: 20111010
  Serious: Yes (Other)
  Sender: FDA-Public Use
  Company Number: CA-JNJFOC-20110500252

PATIENT
  Sex: Female
  Weight: 56 kg

DRUGS (3)
  1. XALATAN [Concomitant]
  2. METHOTREXATE [Concomitant]
     Route: 058
  3. REMICADE [Suspect]
     Indication: CROHN'S DISEASE
     Route: 042

REACTIONS (2)
  - SYNCOPE [None]
  - LACERATION [None]
